FAERS Safety Report 16609955 (Version 1)
Quarter: 2019Q3

REPORT INFORMATION
  Report Type: Spontaneous
  Country: US (occurrence: US)
  Receive Date: 20190607
  Receipt Date: 20190607
  Transmission Date: 20191004
  Serious: Yes (Hospitalization)
  Sender: FDA-Public Use
  Company Number: None

PATIENT
  Sex: Female

DRUGS (5)
  1. IBRANCE [Suspect]
     Active Substance: PALBOCICLIB
     Indication: NEOPLASM MALIGNANT
     Dosage: ?          OTHER FREQUENCY:QD ;?
     Route: 048
     Dates: start: 20180602
  2. FOLIC ACID TAB [Concomitant]
  3. DULOXETINE CAP [Concomitant]
     Active Substance: DULOXETINE HYDROCHLORIDE
  4. CHLORTHALID TAB [Concomitant]
  5. DESONIDE LOT [Concomitant]

REACTIONS (1)
  - Surgery [None]
